FAERS Safety Report 18115781 (Version 1)
Quarter: 2020Q3

REPORT INFORMATION
  Report Type: Spontaneous
  Country: US (occurrence: US)
  Receive Date: 20200805
  Receipt Date: 20200805
  Transmission Date: 20201103
  Serious: Yes (Other)
  Sender: FDA-Public Use
  Company Number: US-ASTRAZENECA-2020SE95862

PATIENT
  Sex: Female
  Weight: 54.4 kg

DRUGS (3)
  1. PULMICORT FLEXHALER [Suspect]
     Active Substance: BUDESONIDE
     Indication: SUSPECTED COVID-19
     Dosage: 180 MCG. TWO PUFFS TWICE DAILY
     Route: 055
     Dates: start: 20200728
  2. PROAIR HFA [Concomitant]
     Active Substance: ALBUTEROL SULFATE
     Indication: DYSPNOEA
     Dosage: 90 UG TWO PUFFS EVERY 4 TO 6 HRS AS NEEDED.
     Route: 055
     Dates: start: 20200728
  3. PULMICORT FLEXHALER [Suspect]
     Active Substance: BUDESONIDE
     Indication: SUSPECTED COVID-19
     Dosage: 180 MCG. FOUR PUFFS
     Route: 055

REACTIONS (5)
  - Device issue [Unknown]
  - Intentional device misuse [Unknown]
  - Drug dose omission by device [Unknown]
  - Product use in unapproved indication [Unknown]
  - Suspected COVID-19 [Unknown]
